FAERS Safety Report 6082170-5 (Version None)
Quarter: 2009Q1

REPORT INFORMATION
  Report Type: 
  Country: None (occurrence: None)
  Receive Date: 20090218
  Receipt Date: 20090211
  Transmission Date: 20090719
  Serious: Yes (Disabling)
  Sender: FDA-Public Use
  Company Number: A0763031A

PATIENT
  Sex: Female

DRUGS (15)
  1. ADVAIR DISKUS 100/50 [Suspect]
     Indication: CONTINUOUS POSITIVE AIRWAY PRESSURE
     Dosage: 2SPR TWICE PER DAY
     Route: 055
     Dates: start: 20080401
  2. ADVAIR DISKUS 100/50 [Suspect]
     Dosage: 1PUFF TWICE PER DAY
     Route: 055
     Dates: start: 20080101, end: 20080301
  3. SPIRIVA [Concomitant]
  4. DILTIAZEM [Concomitant]
  5. NOVALAN [Concomitant]
  6. UNSPECIFIED MEDICATION [Concomitant]
  7. FUROSEMIDE [Concomitant]
  8. LOVASTATIN [Concomitant]
  9. VITAMIN E [Concomitant]
  10. ASPIRIN [Concomitant]
     Route: 048
  11. PLAVIX [Concomitant]
     Route: 048
  12. CENTRUM SILVER [Concomitant]
  13. CALCIUM LACTATE [Concomitant]
  14. CIPRO [Concomitant]
  15. OXYGEN [Concomitant]

REACTIONS (5)
  - CYSTITIS [None]
  - DRUG INEFFECTIVE [None]
  - DYSPHONIA [None]
  - DYSPNOEA [None]
  - PRODUCT QUALITY ISSUE [None]
